FAERS Safety Report 23881705 (Version 1)
Quarter: 2024Q2

REPORT INFORMATION
  Report Type: Spontaneous
  Country: US (occurrence: US)
  Receive Date: 20240521
  Receipt Date: 20240521
  Transmission Date: 20240716
  Serious: No
  Sender: FDA-Public Use
  Company Number: US-SANOFI-02049208

PATIENT
  Age: 76 Year
  Sex: Female
  Weight: 82.9 kg

DRUGS (1)
  1. CEREZYME [Suspect]
     Active Substance: IMIGLUCERASE
     Dosage: 4974 MG, QOW
     Route: 065
     Dates: start: 19971015

REACTIONS (1)
  - Off label use [Unknown]
